FAERS Safety Report 9712148 (Version 3)
Quarter: 2014Q1

REPORT INFORMATION
  Report Type: Spontaneous
  Country: GB (occurrence: GB)
  Receive Date: 20131126
  Receipt Date: 20140307
  Transmission Date: 20141002
  Serious: Yes (Death, Other)
  Sender: FDA-Public Use
  Company Number: GB-B.I. PHARMACEUTICALS,INC./RIDGEFIELD-2013-BI-38874UK

PATIENT
  Age: 76 Year
  Sex: Female
  Weight: 58.5 kg

DRUGS (2)
  1. PRADAXA [Suspect]
     Indication: ATRIAL FIBRILLATION
     Dosage: 220 MG
     Route: 048
     Dates: start: 20121022, end: 20131109
  2. SIMVASTATIN [Concomitant]
     Dosage: 40 MG
     Route: 065

REACTIONS (12)
  - Myocardial infarction [Fatal]
  - Arteriosclerosis coronary artery [Fatal]
  - Pericardial haemorrhage [Fatal]
  - Malaise [Not Recovered/Not Resolved]
  - Syncope [Not Recovered/Not Resolved]
  - Hypoaesthesia [Not Recovered/Not Resolved]
  - Pain in extremity [Not Recovered/Not Resolved]
  - Lethargy [Unknown]
  - Paraesthesia [Unknown]
  - Arterial rupture [Not Recovered/Not Resolved]
  - Convulsion [Unknown]
  - Fatigue [Unknown]
